FAERS Safety Report 21770481 (Version 2)
Quarter: 2022Q4

REPORT INFORMATION
  Report Type: Other
  Country: US (occurrence: None)
  Receive Date: 20221223
  Receipt Date: 20221226
  Transmission Date: 20230113
  Serious: No
  Sender: FDA-Public Use
  Company Number: US-ROCHE-3249055

PATIENT
  Age: 47 Year
  Sex: Female

DRUGS (1)
  1. OCREVUS [Suspect]
     Active Substance: OCRELIZUMAB
     Indication: Multiple sclerosis
     Dosage: YES, INFUSE 600MG INTRAVENOUSLY ONCE EVERY 6 MONTH(S)
     Route: 042

REACTIONS (1)
  - COVID-19 [Not Recovered/Not Resolved]
